FAERS Safety Report 20368416 (Version 1)
Quarter: 2022Q1

REPORT INFORMATION
  Report Type: Report from Study
  Country: US (occurrence: US)
  Receive Date: 20220124
  Receipt Date: 20220124
  Transmission Date: 20220423
  Serious: Yes (Hospitalization, Other)
  Sender: FDA-Public Use
  Company Number: US-TAKEDA-US-001029

PATIENT
  Age: 41 Year
  Sex: Male
  Weight: 77 kg

DRUGS (16)
  1. TEDUGLUTIDE [Suspect]
     Active Substance: TEDUGLUTIDE
     Indication: Short-bowel syndrome
     Dosage: 0.36 MILLILITER, QD
     Route: 058
     Dates: start: 20140421, end: 20140510
  2. TEDUGLUTIDE [Suspect]
     Active Substance: TEDUGLUTIDE
     Indication: Short-bowel syndrome
     Dosage: 0.36 MILLILITER, QD
     Route: 058
     Dates: start: 20140421, end: 20140510
  3. TEDUGLUTIDE [Suspect]
     Active Substance: TEDUGLUTIDE
     Indication: Short-bowel syndrome
     Dosage: 0.36 MILLILITER, QD
     Route: 058
     Dates: start: 20140421, end: 20140510
  4. TEDUGLUTIDE [Suspect]
     Active Substance: TEDUGLUTIDE
     Indication: Short-bowel syndrome
     Dosage: 0.36 MILLILITER, QD
     Route: 058
     Dates: start: 20140421, end: 20140510
  5. TEDUGLUTIDE [Suspect]
     Active Substance: TEDUGLUTIDE
     Dosage: 0.37400
     Route: 065
     Dates: start: 20191017
  6. TEDUGLUTIDE [Suspect]
     Active Substance: TEDUGLUTIDE
     Dosage: 0.37400
     Route: 065
     Dates: start: 20191017
  7. TEDUGLUTIDE [Suspect]
     Active Substance: TEDUGLUTIDE
     Dosage: 0.37400
     Route: 065
     Dates: start: 20191017
  8. TEDUGLUTIDE [Suspect]
     Active Substance: TEDUGLUTIDE
     Dosage: 0.37400
     Route: 065
     Dates: start: 20191017
  9. FOLIC ACID [Concomitant]
     Active Substance: FOLIC ACID
     Indication: Vitamin supplementation
     Dosage: STREN/VOLUM: 1 MG|FREQU: 1 X DAY
  10. HUMIRA [Concomitant]
     Active Substance: ADALIMUMAB
     Indication: Crohn^s disease
     Dosage: STREN/VOLUM: 20 MG |FREQU: EVERY OTHER WEEK
     Dates: start: 2010
  11. MERCATOA [Concomitant]
     Dosage: STREN/VOLUM: 15 MG|FREQU: 1 X DAY
  12. SELENIUM [Concomitant]
     Active Substance: SELENIUM
     Dosage: DF
  13. XARELTO [Concomitant]
     Active Substance: RIVAROXABAN
     Indication: Anticoagulant therapy
     Dosage: STREN/VOLUM: 20 MG|FREQU: DAILY
     Dates: start: 2012
  14. MERCAPTOPURINE [Concomitant]
     Active Substance: MERCAPTOPURINE
     Indication: Crohn^s disease
     Dosage: STREN/VOLUM: 50 MG|FREQU: DAILY
  15. LAMICTAL [Concomitant]
     Active Substance: LAMOTRIGINE
     Indication: Depression
     Dosage: STREN/VOLUM: 300 MG|FREQU: DAILY
  16. OPIUM [Concomitant]
     Active Substance: OPIUM
     Indication: Diarrhoea
     Dosage: STREN/VOLUM: 1 ML|FREQU: AS NEEDED

REACTIONS (8)
  - Dizziness [Recovering/Resolving]
  - Blood iron decreased [Recovering/Resolving]
  - Haematochezia [Recovered/Resolved]
  - Malaise [Recovered/Resolved]
  - Weight increased [Recovered/Resolved]
  - Weight decreased [Recovered/Resolved]
  - Abdominal pain upper [Recovered/Resolved]
  - Abdominal distension [Recovered/Resolved]

NARRATIVE: CASE EVENT DATE: 20140510
